FAERS Safety Report 6985812-2 (Version None)
Quarter: 2010Q3

REPORT INFORMATION
  Report Type: 
  Country: None (occurrence: None)
  Receive Date: 20100915
  Receipt Date: 20100902
  Transmission Date: 20110219
  Serious: Yes (Other)
  Sender: FDA-Public Use
  Company Number: PHHY2010US58621

PATIENT
  Sex: Female

DRUGS (1)
  1. RECLAST [Suspect]
     Dosage: 5 MG ONCE PER YEAR
     Route: 042

REACTIONS (3)
  - BONE PAIN [None]
  - CROHN'S DISEASE [None]
  - OSTEOPENIA [None]
